FAERS Safety Report 8758344 (Version 1)
Quarter: 2012Q4

REPORT INFORMATION
  Report Type: 
  Country: ZA (occurrence: ZA)
  Receive Date: 20120829
  Receipt Date: 20120829
  Transmission Date: 20130627
  Serious: Yes (Hospitalization)
  Sender: FDA-Public Use
  Company Number: ZA-ELI_LILLY_AND_COMPANY-ZA201208006947

PATIENT
  Sex: Female
  Weight: 80 kg

DRUGS (2)
  1. HUMALOG 25% LISPRO, 75% NPL [Suspect]
     Indication: DIABETES MELLITUS
     Dosage: 20 u, bid
     Route: 058
  2. ANTIHYPERTENSIVES [Concomitant]
     Indication: HYPERTENSION
     Dosage: UNK, unknown

REACTIONS (4)
  - Cellulitis [Unknown]
  - Pain in extremity [Unknown]
  - Overweight [Unknown]
  - Hypertension [Unknown]
